FAERS Safety Report 5912595-7 (Version None)
Quarter: 2008Q3

REPORT INFORMATION
  Report Type: 
  Country: None (occurrence: None)
  Receive Date: 20080909
  Receipt Date: 20070912
  Transmission Date: 20090109
  Serious: Yes (Hospitalization)
  Sender: FDA-Public Use
  Company Number: 163-20785-07081647

PATIENT
  Age: 83 Year

DRUGS (3)
  1. THALOMID [Suspect]
     Indication: MULTIPLE MYELOMA
     Dosage: 50-100MG, DAILY, ORAL; 100 MG, 1 IN 1 D, ORAL
     Route: 048
     Dates: start: 20051203, end: 20060901
  2. THALOMID [Suspect]
     Indication: MULTIPLE MYELOMA
     Dosage: 50-100MG, DAILY, ORAL; 100 MG, 1 IN 1 D, ORAL
     Route: 048
     Dates: start: 20061025, end: 20070701
  3. THALOMID [Suspect]
     Indication: MULTIPLE MYELOMA
     Dosage: 50-100MG, DAILY, ORAL; 100 MG, 1 IN 1 D, ORAL
     Route: 048
     Dates: start: 20070703, end: 20070801

REACTIONS (1)
  - BACK PAIN [None]
